FAERS Safety Report 5594315-1 (Version None)
Quarter: 2008Q1

REPORT INFORMATION
  Report Type: 
  Country: None (occurrence: None)
  Receive Date: 20080117
  Receipt Date: 20080108
  Transmission Date: 20080703
  Serious: Yes (Hospitalization)
  Sender: FDA-Public Use
  Company Number: PHRM2008FR00520

PATIENT
  Age: 58 Year
  Sex: Male

DRUGS (2)
  1. TILCOTIL [Concomitant]
     Indication: ARTHRALGIA
     Dosage: 20 MG, QD
     Route: 048
     Dates: start: 20070407, end: 20070409
  2. VOLTAREN [Suspect]
     Indication: ARTHRALGIA
     Dosage: 75 MG, QD
     Route: 048
     Dates: start: 20070305, end: 20070329

REACTIONS (22)
  - ALANINE AMINOTRANSFERASE INCREASED [None]
  - ANAEMIA [None]
  - ANTIBODY TEST POSITIVE [None]
  - CYTOLYTIC HEPATITIS [None]
  - GENERAL PHYSICAL HEALTH DETERIORATION [None]
  - HAEMOGLOBIN DECREASED [None]
  - LEUKOPENIA [None]
  - LUPUS-LIKE SYNDROME [None]
  - LYMPHOPENIA [None]
  - PHOTOSENSITIVITY REACTION [None]
  - PROTEINURIA [None]
  - PRURITUS [None]
  - PYREXIA [None]
  - RASH ERYTHEMATOUS [None]
  - RED BLOOD CELL SEDIMENTATION RATE INCREASED [None]
  - RHEUMATOID FACTOR POSITIVE [None]
  - SCAB [None]
  - SKIN EXFOLIATION [None]
  - SKIN LESION [None]
  - STAPHYLOCOCCAL SKIN INFECTION [None]
  - TELANGIECTASIA [None]
  - WOUND SECRETION [None]
